FAERS Safety Report 4802089-4 (Version None)
Quarter: 2005Q4

REPORT INFORMATION
  Report Type: 
  Country: None (occurrence: None)
  Receive Date: 20051018
  Receipt Date: 20051007
  Transmission Date: 20060501
  Serious: Yes (Other)
  Sender: FDA-Public Use
  Company Number: PHNU2005DE03406

PATIENT
  Sex: Male

DRUGS (4)
  1. SANDIMMUNE [Suspect]
     Indication: RENAL TRANSPLANT
     Route: 048
     Dates: start: 19930101
  2. TORSEMIDE [Concomitant]
     Route: 065
  3. PROVAS ^SCHWARZ^ [Concomitant]
     Route: 065
  4. MOXONIDINE [Concomitant]
     Route: 048

REACTIONS (2)
  - DIABETES MELLITUS NON-INSULIN-DEPENDENT [None]
  - LIVER FUNCTION TEST ABNORMAL [None]
